FAERS Safety Report 5114001-1 (Version None)
Quarter: 2006Q3

REPORT INFORMATION
  Report Type: 
  Country: None (occurrence: None)
  Receive Date: 20060921
  Receipt Date: 20060907
  Transmission Date: 20061208
  Serious: No
  Sender: FDA-Public Use
  Company Number: TPA2006A01535

PATIENT
  Age: 68 Year
  Sex: Male
  Weight: 91.6266 kg

DRUGS (5)
  1. ROZEREM [Suspect]
     Indication: INSOMNIA
     Dosage: 8 MG, HS, PER ORAL
     Route: 048
     Dates: start: 20060807
  2. HALCION [Concomitant]
  3. NIASPAN [Concomitant]
  4. DOXAZOSIN (DOXAZOSIN) [Concomitant]
  5. LOVASTATIN [Concomitant]

REACTIONS (3)
  - DRUG INEFFECTIVE [None]
  - INITIAL INSOMNIA [None]
  - INSOMNIA [None]
